FAERS Safety Report 9196635 (Version 1)
Quarter: 2013Q1

REPORT INFORMATION
  Report Type: Spontaneous
  Country: AR (occurrence: AR)
  Receive Date: 20130328
  Receipt Date: 20130328
  Transmission Date: 20140127
  Serious: Yes (Death, Life-Threatening)
  Sender: FDA-Public Use
  Company Number: AR-ROXANE LABORATORIES, INC.-2013-RO-00423RO

PATIENT
  Age: 80 Year
  Sex: Male

DRUGS (1)
  1. NAPROXEN [Suspect]
     Indication: PYREXIA

REACTIONS (6)
  - Shock haemorrhagic [Fatal]
  - Cardio-respiratory arrest [Fatal]
  - Haemodynamic instability [Fatal]
  - Gastrointestinal haemorrhage [Unknown]
  - Melaena [Unknown]
  - Haematochezia [Unknown]
